FAERS Safety Report 21358417 (Version 1)
Quarter: 2022Q3

REPORT INFORMATION
  Report Type: Report from Study
  Country: US (occurrence: US)
  Receive Date: 20220921
  Receipt Date: 20220921
  Transmission Date: 20221027
  Serious: Yes (Other)
  Sender: FDA-Public Use
  Company Number: US-NOVARTISPH-NVSC2022US210680

PATIENT
  Age: 45 Year
  Sex: Male

DRUGS (1)
  1. COARTEM [Suspect]
     Active Substance: ARTEMETHER\LUMEFANTRINE
     Indication: Product used for unknown indication
     Dosage: 1 DOSAGE FORM, BID (20/120 MG)
     Route: 065

REACTIONS (2)
  - Malaria [Unknown]
  - Vomiting [Unknown]
